FAERS Safety Report 8978400 (Version 2)
Quarter: 2013Q1

REPORT INFORMATION
  Report Type: Spontaneous
  Country: US (occurrence: US)
  Receive Date: 20121220
  Receipt Date: 20130123
  Transmission Date: 20140127
  Serious: Yes (Other)
  Sender: FDA-Public Use
  Company Number: US-PFIZER INC-2012322795

PATIENT
  Sex: Female

DRUGS (4)
  1. NEURONTIN [Suspect]
     Indication: PARAESTHESIA
     Dosage: 600 MG, 3X/DAY
     Dates: start: 2006
  2. NEURONTIN [Suspect]
     Indication: NEUROPATHY PERIPHERAL
  3. SYNTHROID [Concomitant]
     Dosage: UNK
  4. ELAVIL [Concomitant]
     Indication: SLEEP DISORDER
     Dosage: UNK, 1X/DAY

REACTIONS (1)
  - Joint injury [Unknown]
